FAERS Safety Report 7525616-5 (Version None)
Quarter: 2011Q2

REPORT INFORMATION
  Report Type: 
  Country: None (occurrence: None)
  Receive Date: 20110526
  Receipt Date: 20110513
  Transmission Date: 20111010
  Serious: Yes (Hospitalization)
  Sender: FDA-Public Use
  Company Number: 2011MA005874

PATIENT
  Age: 74 Year
  Sex: Male

DRUGS (5)
  1. CLOPIDOGREL [Concomitant]
  2. ESOMEPRAZOLE MAGNESIUM [Concomitant]
  3. CARBAMAZEPINE [Suspect]
     Indication: CONVULSION
     Dosage: 200 MG;BID
  4. ATORVASTATIN [Concomitant]
  5. RAMIPRIL [Concomitant]

REACTIONS (3)
  - HYPONATRAEMIA [None]
  - CONVULSION [None]
  - PARADOXICAL DRUG REACTION [None]
